FAERS Safety Report 9950888 (Version 1)
Quarter: 2014Q1

REPORT INFORMATION
  Report Type: Report from Study
  Country: US (occurrence: US)
  Receive Date: 20140304
  Receipt Date: 20140304
  Transmission Date: 20141002
  Serious: No
  Sender: FDA-Public Use
  Company Number: US-ABBVIE-13P-163-1068210-00

PATIENT
  Age: 32 Year
  Sex: Female
  Weight: 72.64 kg

DRUGS (3)
  1. HUMIRA [Suspect]
     Indication: COLITIS ULCERATIVE
     Dates: start: 201301
  2. HUMIRA [Suspect]
     Indication: SPINAL OSTEOARTHRITIS
  3. METHOTREXATE [Concomitant]
     Indication: COLITIS ULCERATIVE

REACTIONS (1)
  - Off label use [Not Recovered/Not Resolved]
